FAERS Safety Report 10586439 (Version 2)
Quarter: 2014Q4

REPORT INFORMATION
  Report Type: Spontaneous
  Country: SE (occurrence: SE)
  Receive Date: 20141117
  Receipt Date: 20141210
  Transmission Date: 20150529
  Serious: Yes (Other)
  Sender: FDA-Public Use
  Company Number: SE-AMGEN-SWESP2014088635

PATIENT
  Age: 57 Year
  Sex: Female

DRUGS (31)
  1. ACLASTA [Suspect]
     Active Substance: ZOLEDRONIC ACID
     Indication: OSTEOPOROSIS
     Dosage: 5 MG, 1 IN 1 YEAR
     Route: 065
     Dates: start: 20090515, end: 20100507
  2. INDIVINA [Concomitant]
  3. CILAXORAL [Concomitant]
  4. DITROPAN [Concomitant]
     Active Substance: OXYBUTYNIN CHLORIDE
  5. ORUDIS [Concomitant]
     Active Substance: KETOPROFEN
  6. FOLACIN                            /00024201/ [Concomitant]
     Active Substance: FOLIC ACID
  7. DUROFERON [Concomitant]
     Active Substance: FERROUS SULFATE\FERROUS SULFATE, DRIED
  8. ATROVENT [Concomitant]
     Active Substance: IPRATROPIUM BROMIDE
  9. PAPAVERINE [Concomitant]
     Active Substance: PAPAVERINE
  10. ALVEDON [Concomitant]
     Active Substance: ACETAMINOPHEN
  11. FOSAMAX [Suspect]
     Active Substance: ALENDRONATE SODIUM
     Indication: OSTEOPOROSIS
     Dosage: 70 MG, QWK
     Route: 048
     Dates: start: 200604, end: 200905
  12. MOVICOL                            /01749801/ [Concomitant]
  13. SUMATRIPTAN. [Concomitant]
     Active Substance: SUMATRIPTAN
  14. KALCIPOS D3 [Concomitant]
  15. OMEPRAZOLE. [Concomitant]
     Active Substance: OMEPRAZOLE
  16. OXYNORM [Concomitant]
     Active Substance: OXYCODONE HYDROCHLORIDE
  17. PREDNISOLONE. [Concomitant]
     Active Substance: PREDNISOLONE
  18. METHOTREXATE [Concomitant]
     Active Substance: METHOTREXATE
  19. FENTANYL. [Concomitant]
     Active Substance: FENTANYL
  20. METHADONE [Concomitant]
     Active Substance: METHADONE HYDROCHLORIDE
  21. OXASCAND [Concomitant]
     Active Substance: OXAZEPAM
  22. OPTINATE SEPTIMUM [Suspect]
     Active Substance: RISEDRONATE SODIUM
     Indication: OSTEOPOROSIS
     Dosage: 35 MG, QWK
     Route: 048
     Dates: start: 200501, end: 200604
  23. EMGESAN [Concomitant]
  24. ZOPICLONE [Concomitant]
     Active Substance: ZOPICLONE
  25. PROLIA [Suspect]
     Active Substance: DENOSUMAB
     Indication: OSTEOPOROSIS
     Dosage: 60 MG, Q6MO
     Route: 065
     Dates: start: 20120515, end: 20131223
  26. GLYCERYL TRINITRATE [Concomitant]
     Active Substance: NITROGLYCERIN
  27. INDERAL [Concomitant]
     Active Substance: PROPRANOLOL HYDROCHLORIDE
  28. POSTAFEN                           /00060202/ [Concomitant]
     Active Substance: BUCLIZINE HYDROCHLORIDE
  29. LEVAXIN [Concomitant]
     Active Substance: LEVOTHYROXINE SODIUM
  30. FURIX [Concomitant]
     Active Substance: FUROSEMIDE
  31. ACETYLCYSTEINE. [Concomitant]
     Active Substance: ACETYLCYSTEINE

REACTIONS (1)
  - Atypical femur fracture [Not Recovered/Not Resolved]

NARRATIVE: CASE EVENT DATE: 20140514
